FAERS Safety Report 25787827 (Version 2)
Quarter: 2025Q4

REPORT INFORMATION
  Report Type: Spontaneous
  Country: US (occurrence: US)
  Receive Date: 20250910
  Receipt Date: 20251015
  Transmission Date: 20260118
  Serious: No
  Sender: JOHNSON AND JOHNSON
  Company Number: US-JNJFOC-20250903727

PATIENT
  Age: 64 Year
  Sex: Female

DRUGS (3)
  1. SIMPONI ARIA [Suspect]
     Active Substance: GOLIMUMAB
     Indication: Psoriatic arthropathy
     Route: 041
     Dates: start: 20250522, end: 20250626
  2. SIMPONI ARIA [Suspect]
     Active Substance: GOLIMUMAB
     Indication: Ankylosing spondylitis
  3. PREGABALIN [Concomitant]
     Active Substance: PREGABALIN
     Indication: Neuralgia

REACTIONS (13)
  - Diarrhoea [Unknown]
  - Inappropriate schedule of product administration [Unknown]
  - Sinusitis [Not Recovered/Not Resolved]
  - Neck pain [Recovering/Resolving]
  - Arthralgia [Recovering/Resolving]
  - Arthralgia [Unknown]
  - Cervical radiculopathy [Unknown]
  - Hypoaesthesia [Unknown]
  - Fatigue [Unknown]
  - Hepatic pain [Unknown]
  - Illness [Unknown]
  - Back pain [Unknown]
  - Headache [Unknown]

NARRATIVE: CASE EVENT DATE: 20250522
